FAERS Safety Report 9705249 (Version 3)
Quarter: 2014Q2

REPORT INFORMATION
  Report Type: Spontaneous
  Country: US (occurrence: US)
  Receive Date: 20131122
  Receipt Date: 20140407
  Transmission Date: 20141212
  Serious: Yes (Hospitalization)
  Sender: FDA-Public Use
  Company Number: US-ACTELION-A-NJ2013-91185

PATIENT
  Age: 38 Year
  Sex: Female

DRUGS (2)
  1. TRACLEER [Suspect]
     Indication: SCLERODERMA
     Dosage: UNK
     Route: 048
     Dates: start: 20120622
  2. COUMADIN [Concomitant]

REACTIONS (4)
  - Pulmonary thrombosis [Unknown]
  - Diarrhoea [Recovered/Resolved]
  - Abdominal pain [Recovered/Resolved]
  - Blood count abnormal [Recovered/Resolved]
